FAERS Safety Report 11184841 (Version 1)
Quarter: 2015Q2

REPORT INFORMATION
  Report Type: Spontaneous
  Country: US (occurrence: US)
  Receive Date: 20150612
  Receipt Date: 20150612
  Transmission Date: 20150821
  Serious: Yes (Other)
  Sender: FDA-Public Use
  Company Number: PHHY2015US069160

PATIENT
  Age: 32 Week

DRUGS (4)
  1. HUMAN PAPILLOMA VIRUS VACCINE [Suspect]
     Active Substance: HUMAN PAPILLOMAVIRUS VACCINE
     Indication: IMMUNISATION
     Route: 064
  2. INFLUENZA VIRUS VACCINE - UNKNOWN INN [Suspect]
     Active Substance: INFLUENZA VIRUS VACCINE
     Indication: IMMUNISATION
     Route: 064
  3. FERROUS SULFATE [Suspect]
     Active Substance: FERROUS SULFATE\FERROUS SULFATE, DRIED
     Indication: PRODUCT USED FOR UNKNOWN INDICATION
     Route: 064
  4. CANNABIS [Suspect]
     Active Substance: CANNABIS SATIVA SUBSP. INDICA TOP
     Indication: PRODUCT USED FOR UNKNOWN INDICATION
     Route: 064

REACTIONS (3)
  - Vanishing twin syndrome [None]
  - Premature baby [Unknown]
  - Foetal exposure during pregnancy [Unknown]
